FAERS Safety Report 5641075-1 (Version None)
Quarter: 2008Q1

REPORT INFORMATION
  Report Type: 
  Country: None (occurrence: None)
  Receive Date: 20080225
  Receipt Date: 20080212
  Transmission Date: 20080703
  Serious: Yes (Other)
  Sender: FDA-Public Use
  Company Number: GXKR2008IT01604

PATIENT
  Age: 31 Year
  Sex: Female

DRUGS (4)
  1. PAROXETINE HCL [Suspect]
     Indication: DEPRESSION
     Dosage: 20 MG, QD; 30 MG, QD; 10 MG, QD; 10 MG EVERY OTHER DAY; 5 MG, QD
  2. PAROXETINE HCL [Suspect]
     Indication: DEPRESSION
     Dosage: 20 MG, QD; 30 MG, QD; 10 MG, QD; 10 MG EVERY OTHER DAY; 5 MG, QD
  3. PAROXETINE HCL [Suspect]
     Indication: DEPRESSION
     Dosage: 20 MG, QD; 30 MG, QD; 10 MG, QD; 10 MG EVERY OTHER DAY; 5 MG, QD
  4. VENLAFAXIINE HCL [Suspect]
     Indication: DEPRESSION
     Dosage: 150 MG, QD

REACTIONS (21)
  - ACTIVITIES OF DAILY LIVING IMPAIRED [None]
  - AGITATION [None]
  - ASTHENIA [None]
  - DEREALISATION [None]
  - DISTURBANCE IN ATTENTION [None]
  - DIZZINESS [None]
  - DRUG WITHDRAWAL SYNDROME [None]
  - FATIGUE [None]
  - HEADACHE [None]
  - HYPERHIDROSIS [None]
  - HYPERSOMNIA [None]
  - HYPOAESTHESIA [None]
  - IRRITABILITY [None]
  - MOOD ALTERED [None]
  - NO THERAPEUTIC RESPONSE [None]
  - OCULAR DISCOMFORT [None]
  - PARAESTHESIA [None]
  - SEROTONIN SYNDROME [None]
  - SOCIAL PROBLEM [None]
  - SOMNOLENCE [None]
  - YAWNING [None]
